FAERS Safety Report 6255683-0 (Version None)
Quarter: 2009Q3

REPORT INFORMATION
  Report Type: 
  Country: None (occurrence: None)
  Receive Date: 20090701
  Receipt Date: 20090622
  Transmission Date: 20100115
  Serious: Yes (Other)
  Sender: FDA-Public Use
  Company Number: 2009SP013952

PATIENT
  Sex: Female

DRUGS (2)
  1. CLARITIN [Suspect]
     Indication: OFF LABEL USE
     Dosage: ONCE; PO
     Route: 048
  2. CLARITIN [Suspect]
     Indication: URTICARIA
     Dosage: ONCE; PO
     Route: 048

REACTIONS (1)
  - LIP SWELLING [None]
